FAERS Safety Report 8094649-5 (Version None)
Quarter: 2012Q1

REPORT INFORMATION
  Report Type: 
  Country: None (occurrence: None)
  Receive Date: 20120131
  Receipt Date: 20111128
  Transmission Date: 20120608
  Serious: No
  Sender: FDA-Public Use
  Company Number: US-ABBOTT-11P-163-0878934-00

PATIENT
  Sex: Female
  Weight: 59.02 kg

DRUGS (7)
  1. DILTIAZEM HCL [Concomitant]
     Indication: BLOOD PRESSURE
  2. CREON [Suspect]
     Indication: PANCREATITIS CHRONIC
     Dosage: 7 CAPSULES PER DAY
     Dates: start: 20110101
  3. DYAZIDE [Concomitant]
     Indication: BLOOD PRESSURE
  4. ESTROGENIC SUBSTANCE [Concomitant]
     Indication: PRODUCT USED FOR UNKNOWN INDICATION
  5. POTASSIUM [Concomitant]
     Indication: MINERAL SUPPLEMENTATION
  6. SYNTHROID [Concomitant]
     Indication: PRODUCT USED FOR UNKNOWN INDICATION
  7. PREVACID [Concomitant]
     Indication: GASTROOESOPHAGEAL REFLUX DISEASE

REACTIONS (6)
  - INCORRECT DOSE ADMINISTERED [None]
  - BALANCE DISORDER [None]
  - DIZZINESS [None]
  - BLOOD PRESSURE INCREASED [None]
  - HEADACHE [None]
  - URINE ODOUR ABNORMAL [None]
